FAERS Safety Report 19542515 (Version 1)
Quarter: 2021Q3

REPORT INFORMATION
  Report Type: Other
  Country: US (occurrence: US)
  Receive Date: 20210713
  Receipt Date: 20210713
  Transmission Date: 20211014
  Serious: Yes (Hospitalization, Other)
  Sender: FDA-Public Use
  Company Number: US-SERVIER-S21006919

PATIENT

DRUGS (16)
  1. TN UNSPECIFIED [VINCRISTINE SULFATE] [Suspect]
     Active Substance: VINCRISTINE SULFATE
     Indication: PRECURSOR B-LYMPHOBLASTIC LYMPHOMA
     Dosage: 1.5 MG/M?, INDUCTION, DAYS 1 AND 8, 15?22
     Route: 042
     Dates: start: 20131121
  2. TN UNSPECIFIED [DEXAMETHASONE] [Suspect]
     Active Substance: DEXAMETHASONE
     Dosage: UNK, INTENSIFICATION
     Route: 065
     Dates: start: 2017
  3. LEUCOVORIN CALCIUM. [Suspect]
     Active Substance: LEUCOVORIN CALCIUM
     Dosage: UNK, CONSOLIDATION, RESCUE FOR METHOTREXATE
     Route: 065
  4. ONCASPAR [Suspect]
     Active Substance: PEGASPARGASE
     Indication: PRECURSOR B-LYMPHOBLASTIC LYMPHOMA
     Dosage: 2500 IU/M?, INDUCTION DAY 4
     Route: 042
     Dates: start: 20131124
  5. TN UNSPECIFIED [DAUNORUBICIN HYDROCHLORIDE] [Suspect]
     Active Substance: DAUNORUBICIN HYDROCHLORIDE
     Indication: PRECURSOR B-LYMPHOBLASTIC LYMPHOMA
     Dosage: 25 MG/M?, INDUCTION, DAYS 1, 8, 15, 22
     Route: 042
     Dates: start: 20131121
  6. TN UNSPECIFIED [PREDNISONE] [Suspect]
     Active Substance: PREDNISONE
     Indication: PRECURSOR B-LYMPHOBLASTIC LYMPHOMA
     Dosage: 30 MG/M?/DOSE, BID, INDUCTCION, DAYS 1?28
     Route: 048
     Dates: start: 20131121
  7. TN UNSPECIFIED [METHOTREXATE] [Suspect]
     Active Substance: METHOTREXATE
     Dosage: UNK, INTENSIFICATION
     Route: 042
     Dates: start: 2017
  8. TN UNSPECIFIED [DEXAMETHASONE] [Suspect]
     Active Substance: DEXAMETHASONE
     Dosage: 6 MG/M?, DAILY, CONSOLIDATION DAYS 1?5
     Route: 065
  9. LEUCOVORIN CALCIUM. [Suspect]
     Active Substance: LEUCOVORIN CALCIUM
     Indication: PRECURSOR B-LYMPHOBLASTIC LYMPHOMA
     Dosage: UNK, INDUCTION DAYS 10?11, 31?32
     Route: 048
     Dates: start: 20131130
  10. TN UNSPECIFIED [DEXAMETHASONE] [Suspect]
     Active Substance: DEXAMETHASONE
     Indication: PRECURSOR B-LYMPHOBLASTIC LYMPHOMA
     Dosage: 20MG/M?, DAILY, REINDUCTION DAYS 1?5, 15?19
     Route: 065
  11. TN UNSPECIFIED [CYTARABINE] [Suspect]
     Active Substance: CYTARABINE
     Indication: PRECURSOR B-LYMPHOBLASTIC LYMPHOMA
     Dosage: UNK, INDUCTION DAY 1
     Route: 037
     Dates: start: 20131121
  12. TN UNSPECIFIED [METHOTREXATE] [Suspect]
     Active Substance: METHOTREXATE
     Indication: PRECURSOR B-LYMPHOBLASTIC LYMPHOMA
     Dosage: UNK, INDUCTION DAYS 8, 29
     Route: 037
     Dates: start: 20131128
  13. TN UNSPECIFIED [MITOXANTRONE HYDROCHLORIDE] [Suspect]
     Active Substance: MITOXANTRONE HYDROCHLORIDE
     Indication: PRECURSOR B-LYMPHOBLASTIC LYMPHOMA
     Dosage: 10MG/M?/DOSE, REINDUCTION DAYS 1?2
     Route: 065
  14. TN UNSPECIFIED [CYCLOPHOSPHAMIDE] [Suspect]
     Active Substance: CYCLOPHOSPHAMIDE
     Indication: PRECURSOR B-LYMPHOBLASTIC LYMPHOMA
     Dosage: 440MG/M?/DOSE, CONSOLIDATION DAYS 15?19
     Route: 065
  15. TN UNSPECIFIED [ETOPOSIDE] [Suspect]
     Active Substance: ETOPOSIDE
     Indication: PRECURSOR B-LYMPHOBLASTIC LYMPHOMA
     Dosage: 100MG/M?/DOSE, CONSOLIDATION DAYS 15?19
     Route: 065
  16. TN UNSPECIFIED [METHOTREXATE] [Suspect]
     Active Substance: METHOTREXATE
     Dosage: 1000 MG/M?/DOSE, CONSOLIDATION DAY 8
     Route: 042

REACTIONS (9)
  - Leukaemia recurrent [Not Recovered/Not Resolved]
  - Deep vein thrombosis [Recovered/Resolved]
  - Sepsis [Unknown]
  - Multiple organ dysfunction syndrome [Recovered/Resolved]
  - Pneumonia necrotising [Unknown]
  - Splenic infarction [Not Recovered/Not Resolved]
  - Leukaemia recurrent [Recovered/Resolved]
  - Renal infarct [Unknown]
  - Pleural effusion [Unknown]

NARRATIVE: CASE EVENT DATE: 201312
